FAERS Safety Report 16882982 (Version 1)
Quarter: 2019Q4

REPORT INFORMATION
  Report Type: Spontaneous
  Country: CO (occurrence: CO)
  Receive Date: 20191004
  Receipt Date: 20191004
  Transmission Date: 20200122
  Serious: Yes (Hospitalization, Other)
  Sender: FDA-Public Use
  Company Number: CO-TEVA-2019-CO-1117012

PATIENT
  Age: 17 Year

DRUGS (1)
  1. EMTHEXATE 50 MG/2 ML (METHOTREXATE) [Suspect]
     Active Substance: METHOTREXATE
     Indication: ACUTE MYELOID LEUKAEMIA
     Route: 037

REACTIONS (4)
  - Dysarthria [Unknown]
  - Toxicity to various agents [Unknown]
  - Neurological decompensation [Unknown]
  - Hemiparesis [Unknown]
